FAERS Safety Report 5316331-7 (Version None)
Quarter: 2007Q2

REPORT INFORMATION
  Report Type: 
  Country: None (occurrence: None)
  Receive Date: 20070430
  Receipt Date: 20070419
  Transmission Date: 20071010
  Serious: Yes (Hospitalization)
  Sender: FDA-Public Use
  Company Number: 232932K07USA

PATIENT
  Age: 52 Year
  Sex: Male

DRUGS (3)
  1. REBIF [Suspect]
     Indication: MULTIPLE SCLEROSIS
     Dosage: 44 MCG, 3 IN 1 WEEKS, SUBCUTANEOUS
     Route: 058
     Dates: start: 20040618
  2. INSULIN (INSULIN /00030501/) [Concomitant]
  3. GLUCOPHAGE (METFORMIN /00082701/) [Concomitant]

REACTIONS (5)
  - INTERVERTEBRAL DISC PROTRUSION [None]
  - PROCEDURAL PAIN [None]
  - SPEECH DISORDER [None]
  - SPINAL OSTEOARTHRITIS [None]
  - VISUAL DISTURBANCE [None]
